FAERS Safety Report 5847134-2 (Version None)
Quarter: 2008Q3

REPORT INFORMATION
  Report Type: 
  Country: None (occurrence: None)
  Receive Date: 20080815
  Receipt Date: 20080806
  Transmission Date: 20090109
  Serious: Yes (Other)
  Sender: FDA-Public Use
  Company Number: PHEH2006US01838

PATIENT
  Sex: Female
  Weight: 64.399 kg

DRUGS (9)
  1. ZOMETA [Suspect]
     Dosage: NOT SPECIFIED
  2. AREDIA [Suspect]
     Dosage: UNK, UNK
  3. THALIDOMIDE [Concomitant]
     Indication: PLASMACYTOMA
     Dosage: UNK, UNK
  4. HYDROCHLOROTHIAZIDE [Concomitant]
     Indication: HYPERTENSION
     Dosage: 25 MG, QD
     Route: 048
  5. K-DUR [Concomitant]
     Dosage: 10 MEQ, QD
     Route: 048
  6. COZAAR [Concomitant]
     Indication: HYPERTENSION
     Dosage: 25 MG, QD
     Route: 048
  7. DECADRON SRC [Concomitant]
     Indication: PLASMACYTOMA
     Dosage: UNK, UNK
  8. ARANESP [Concomitant]
  9. PEG-INTRON [Concomitant]
     Indication: HEPATITIS C

REACTIONS (8)
  - INFECTION [None]
  - JOINT INJURY [None]
  - KNEE ARTHROPLASTY [None]
  - LYMPHADENOPATHY [None]
  - MULTIPLE MYELOMA [None]
  - NECROSIS [None]
  - OSTEONECROSIS [None]
  - OSTEOPOROSIS [None]
